FAERS Safety Report 4961702-1 (Version None)
Quarter: 2006Q2

REPORT INFORMATION
  Report Type: 
  Country: None (occurrence: None)
  Receive Date: 20060404
  Receipt Date: 20060324
  Transmission Date: 20061013
  Serious: Yes (Other)
  Sender: FDA-Public Use
  Company Number: JP-ABBOTT-06P-087-0329445-00

PATIENT
  Sex: Female

DRUGS (3)
  1. KLARICID [Suspect]
     Indication: HELICOBACTER INFECTION
     Route: 048
     Dates: start: 20060313, end: 20060316
  2. LANSOPRAZOLE [Suspect]
     Indication: HELICOBACTER INFECTION
     Route: 048
     Dates: start: 20060313, end: 20060316
  3. AMOXICILLIN [Suspect]
     Indication: HELICOBACTER INFECTION
     Dates: start: 20060313, end: 20060316

REACTIONS (2)
  - DRUG HYPERSENSITIVITY [None]
  - PNEUMONIA [None]
